FAERS Safety Report 5264188-5 (Version None)
Quarter: 2007Q1

REPORT INFORMATION
  Report Type: 
  Country: None (occurrence: None)
  Receive Date: 20070313
  Receipt Date: 20070308
  Transmission Date: 20070707
  Serious: Yes (Other)
  Sender: FDA-Public Use
  Company Number: AR-BOEHRINGER INGELHEIM PHARMACEUTICALS, INC.-2007-DE-01417GD

PATIENT
  Sex: Male

DRUGS (7)
  1. PRAMIPEXOLE DIHYDROCHLORIDE [Suspect]
     Indication: PARKINSON'S DISEASE
  2. AMANTADINE HCL [Suspect]
     Indication: PARKINSON'S DISEASE
  3. LEVODOPA [Suspect]
     Indication: PARKINSON'S DISEASE
     Dates: start: 19940101
  4. LEVODOPA [Suspect]
  5. CABERGOLINE [Suspect]
     Indication: PARKINSON'S DISEASE
     Dates: start: 20030301
  6. APOMORPHINE [Suspect]
     Indication: PARKINSON'S DISEASE
     Route: 058
  7. APOMORPHINE [Suspect]
     Dosage: 6 OR 9 MG
     Route: 058

REACTIONS (3)
  - DRUG INEFFECTIVE [None]
  - DYSTONIA [None]
  - OEDEMA PERIPHERAL [None]
